FAERS Safety Report 5161374-X (Version None)
Quarter: 2006Q4

REPORT INFORMATION
  Report Type: 
  Country: None (occurrence: None)
  Receive Date: 20061121
  Receipt Date: 20061025
  Transmission Date: 20070319
  Serious: Yes (Hospitalization, Other)
  Sender: FDA-Public Use
  Company Number: 2006128174

PATIENT
  Age: 39 Year
  Sex: Female

DRUGS (3)
  1. ATARAX [Suspect]
     Dosage: ORAL
     Route: 048
  2. ALCOHOL (ETHANOL) [Suspect]
     Dosage: ORAL
     Route: 048
  3. CYMBALTA [Suspect]
     Dosage: ORAL
     Route: 048

REACTIONS (2)
  - FATIGUE [None]
  - SUICIDE ATTEMPT [None]
